FAERS Safety Report 20510851 (Version 1)
Quarter: 2022Q1

REPORT INFORMATION
  Report Type: Spontaneous
  Country: FR (occurrence: FR)
  Receive Date: 20220224
  Receipt Date: 20220224
  Transmission Date: 20220423
  Serious: Yes (Hospitalization)
  Sender: FDA-Public Use
  Company Number: None

PATIENT
  Age: 18 Year
  Sex: Male
  Weight: 74.5 kg

DRUGS (10)
  1. METHOTREXATE [Suspect]
     Active Substance: METHOTREXATE
     Indication: B precursor type acute leukaemia
     Route: 041
     Dates: start: 20211216, end: 20211217
  2. AMIKACIN [Concomitant]
     Active Substance: AMIKACIN
  3. TAZOBACTAM SODIUM [Concomitant]
     Active Substance: TAZOBACTAM SODIUM
  4. METOPIMAZINE [Concomitant]
     Active Substance: METOPIMAZINE
  5. NILOTINIB [Concomitant]
     Active Substance: NILOTINIB
  6. ONDANSETRON [Concomitant]
     Active Substance: ONDANSETRON
  7. VINCRISTINE SULFATE [Concomitant]
     Active Substance: VINCRISTINE SULFATE
  8. PIPERACILLIN SODIUM [Concomitant]
     Active Substance: PIPERACILLIN SODIUM
  9. PURINETHOL [Concomitant]
     Active Substance: MERCAPTOPURINE
  10. VANCOMYCIN [Concomitant]
     Active Substance: VANCOMYCIN

REACTIONS (4)
  - Hepatitis [Recovering/Resolving]
  - Dermatitis bullous [Recovering/Resolving]
  - Toxic erythema of chemotherapy [Recovering/Resolving]
  - Acute kidney injury [Recovered/Resolved]

NARRATIVE: CASE EVENT DATE: 20211217
